FAERS Safety Report 20417522 (Version 1)
Quarter: 2022Q1

REPORT INFORMATION
  Report Type: Spontaneous
  Country: NL (occurrence: NL)
  Receive Date: 20220202
  Receipt Date: 20220202
  Transmission Date: 20220423
  Serious: Yes (Other)
  Sender: FDA-Public Use
  Company Number: NL-NOVARTISPH-NVSC2022NL021786

PATIENT
  Age: 47 Year
  Sex: Male
  Weight: 54 kg

DRUGS (3)
  1. RISPERIDONE [Interacting]
     Active Substance: RISPERIDONE
     Indication: Sleep disorder
     Dosage: 5 MG, UNKNOWN (LAST REPORTED DOSE)
     Route: 065
  2. CARBAMAZEPINE [Interacting]
     Active Substance: CARBAMAZEPINE
     Indication: Generalised tonic-clonic seizure
     Dosage: 800 MG, UNKNOWN
     Route: 065
  3. LORAZEPAM [Concomitant]
     Active Substance: LORAZEPAM
     Indication: Sleep disorder
     Dosage: 3.5 MG, UNKNOWN (LAST REPORTED DOSE)
     Route: 065

REACTIONS (2)
  - Drug level decreased [Unknown]
  - Drug interaction [Unknown]
